FAERS Safety Report 5937117-6 (Version None)
Quarter: 2008Q4

REPORT INFORMATION
  Report Type: 
  Country: None (occurrence: None)
  Receive Date: 20081031
  Receipt Date: 20081020
  Transmission Date: 20090506
  Serious: Yes (Hospitalization)
  Sender: FDA-Public Use
  Company Number: PHBS2008JP06082

PATIENT
  Age: 55 Year
  Sex: Female

DRUGS (1)
  1. IMATINIB MESYLATE [Suspect]
     Indication: CHRONIC MYELOID LEUKAEMIA
     Dosage: UNK
     Dates: start: 20020204

REACTIONS (22)
  - ACID FAST BACILLI INFECTION [None]
  - ACTIVATED PARTIAL THROMBOPLASTIN TIME PROLONGED [None]
  - ACUTE FEBRILE NEUTROPHILIC DERMATOSIS [None]
  - ALPHA 2 GLOBULIN INCREASED [None]
  - BLOOD FIBRINOGEN INCREASED [None]
  - BLOOD LACTATE DEHYDROGENASE INCREASED [None]
  - BONE MARROW DISORDER [None]
  - BRONCHOALVEOLAR LAVAGE [None]
  - BRONCHOPNEUMONIA [None]
  - C-REACTIVE PROTEIN INCREASED [None]
  - CATHETER SEPSIS [None]
  - CHROMOSOME ANALYSIS ABNORMAL [None]
  - FATIGUE [None]
  - FUNGAL SEPSIS [None]
  - LEUKOPENIA [None]
  - MYCOBACTERIAL INFECTION [None]
  - NEUTROPENIA [None]
  - PLATELET COUNT INCREASED [None]
  - PNEUMONIA STAPHYLOCOCCAL [None]
  - PYREXIA [None]
  - SKIN NODULE [None]
  - SKIN PLAQUE [None]
